FAERS Safety Report 9433283 (Version 3)
Quarter: 2013Q4

REPORT INFORMATION
  Report Type: Spontaneous
  Country: US (occurrence: US)
  Receive Date: 20130731
  Receipt Date: 20131120
  Transmission Date: 20140711
  Serious: Yes (Hospitalization)
  Sender: FDA-Public Use
  Company Number: US-ELI_LILLY_AND_COMPANY-US201307007462

PATIENT
  Age: 54 Year
  Sex: Female
  Weight: 85.71 kg

DRUGS (5)
  1. FORTEO [Suspect]
     Indication: OSTEOPOROSIS
     Dosage: 20 UG, QD
     Route: 058
     Dates: start: 2011
  2. FORTEO [Suspect]
     Indication: BONE DENSITY DECREASED
  3. CORTEF [Concomitant]
     Indication: PRODUCT USED FOR UNKNOWN INDICATION
     Dosage: 12.5 MG, QD
     Route: 065
  4. CALCIUM [Concomitant]
     Indication: PRODUCT USED FOR UNKNOWN INDICATION
     Dosage: 1200 MG, QD
     Route: 065
  5. VITAMIN D3 [Concomitant]
     Indication: PRODUCT USED FOR UNKNOWN INDICATION
     Dosage: 4800 IU, QD
     Route: 065

REACTIONS (5)
  - Nephrolithiasis [Recovering/Resolving]
  - Bone density decreased [Unknown]
  - Injection site reaction [Unknown]
  - Flushing [Unknown]
  - Back pain [Unknown]
